FAERS Safety Report 12640863 (Version 1)
Quarter: 2016Q3

REPORT INFORMATION
  Report Type: Report from Study
  Country: US (occurrence: US)
  Receive Date: 20160810
  Receipt Date: 20160810
  Transmission Date: 20161109
  Serious: Yes (Other)
  Sender: FDA-Public Use
  Company Number: US-ROCHE-1088985

PATIENT
  Age: 25 Year
  Sex: Female
  Weight: 79 kg

DRUGS (6)
  1. RO 4929097 (GAMMA SECRETASE INHIBITOR) [Suspect]
     Active Substance: INVESTIGATIONAL PRODUCT
     Indication: NEOPLASM
  2. RO 4929097 (GAMMA SECRETASE INHIBITOR) [Suspect]
     Active Substance: INVESTIGATIONAL PRODUCT
     Indication: SARCOMA METASTATIC
  3. VISMODEGIB [Suspect]
     Active Substance: VISMODEGIB
     Indication: NEOPLASM
     Dosage: DATE OF LAST DOSE ADMINISTERED ON 24/MAY/2012
     Route: 048
     Dates: start: 20110915, end: 20120608
  4. RO 4929097 (GAMMA SECRETASE INHIBITOR) [Suspect]
     Active Substance: INVESTIGATIONAL PRODUCT
     Indication: SOFT TISSUE NEOPLASM
     Dosage: DATE OF LAST DOSE ADMINISTERED ON 25/MAY/2012
     Route: 048
     Dates: start: 20110915, end: 20120608
  5. VISMODEGIB [Suspect]
     Active Substance: VISMODEGIB
     Indication: SOFT TISSUE NEOPLASM
  6. VISMODEGIB [Suspect]
     Active Substance: VISMODEGIB
     Indication: SARCOMA METASTATIC

REACTIONS (4)
  - Lymphocyte count decreased [Unknown]
  - White blood cell count decreased [Unknown]
  - Neutrophil count decreased [Unknown]
  - Blood creatine phosphokinase increased [Recovered/Resolved]

NARRATIVE: CASE EVENT DATE: 20111220
